FAERS Safety Report 15842680 (Version 1)
Quarter: 2019Q1

REPORT INFORMATION
  Report Type: Spontaneous
  Country: US (occurrence: US)
  Receive Date: 20190118
  Receipt Date: 20190118
  Transmission Date: 20190417
  Serious: Yes (Hospitalization)
  Sender: FDA-Public Use
  Company Number: None

PATIENT
  Sex: Female

DRUGS (8)
  1. OCUVITE, OMEPRAZOLE, PLAQUENIL [Concomitant]
  2. PROAIR, SYMBICORT, TRAZODONE [Concomitant]
  3. HYDROXYCHLOR, K-TAB, MULTIVITAMIN [Concomitant]
  4. CENTRUM, CLOBETASOL, FUROSEMIDE [Concomitant]
  5. POT CL MICRO, PREDNISONE [Concomitant]
  6. CALCIUM, CELECOXIB, FLUOXETINE [Concomitant]
  7. CYCLOBENZAPR, ESTRADIOL, FISH OIL [Concomitant]
  8. XELJANZ [Suspect]
     Active Substance: TOFACITINIB CITRATE
     Indication: RHEUMATOID ARTHRITIS
     Route: 048
     Dates: start: 20180207

REACTIONS (1)
  - Therapy cessation [None]
